FAERS Safety Report 12484634 (Version 1)
Quarter: 2016Q2

REPORT INFORMATION
  Report Type: Spontaneous
  Country: US (occurrence: None)
  Receive Date: 20160620
  Receipt Date: 20160620
  Transmission Date: 20160815
  Serious: No
  Sender: FDA-Public Use
  Company Number: None

PATIENT
  Age: 57 Year
  Sex: Female

DRUGS (8)
  1. WELLBUTRIN [Concomitant]
     Active Substance: BUPROPION HYDROCHLORIDE
  2. NYSTATIN. [Concomitant]
     Active Substance: NYSTATIN
  3. CLOBETASOL CREAM [Concomitant]
     Active Substance: CLOBETASOL
  4. MEDROXYPRAC [Concomitant]
  5. ESTRADIOL. [Concomitant]
     Active Substance: ESTRADIOL
  6. CELEXA [Concomitant]
     Active Substance: CITALOPRAM HYDROBROMIDE
  7. COSENTYX [Suspect]
     Active Substance: SECUKINUMAB
     Indication: PSORIASIS
     Route: 058
     Dates: start: 20151218
  8. METFORMIN [Concomitant]
     Active Substance: METFORMIN HYDROCHLORIDE

REACTIONS (2)
  - Drug ineffective [None]
  - Condition aggravated [None]

NARRATIVE: CASE EVENT DATE: 201605
